FAERS Safety Report 5766313-6 (Version None)
Quarter: 2008Q2

REPORT INFORMATION
  Report Type: 
  Country: None (occurrence: None)
  Receive Date: 20080611
  Receipt Date: 20080605
  Transmission Date: 20081010
  Serious: Yes (Hospitalization)
  Sender: FDA-Public Use
  Company Number: AU-MERCK-0806AUS00027

PATIENT
  Age: 78 Year
  Sex: Female

DRUGS (5)
  1. FOSAMAX PLUS D [Suspect]
     Route: 048
  2. FOSAMAX [Suspect]
     Route: 048
  3. CALCIUM CARBONATE [Concomitant]
     Route: 048
  4. [THERAPY UNSPECIFIED] [Concomitant]
     Indication: BLOOD PRESSURE
     Route: 065
  5. [THERAPY UNSPECIFIED] [Concomitant]
     Indication: ANEURYSM
     Route: 065

REACTIONS (2)
  - DRUG INEFFECTIVE [None]
  - SPINAL COMPRESSION FRACTURE [None]
